FAERS Safety Report 20920265 (Version 1)
Quarter: 2022Q2

REPORT INFORMATION
  Report Type: Spontaneous
  Country: AU (occurrence: AU)
  Receive Date: 20220606
  Receipt Date: 20220606
  Transmission Date: 20220721
  Serious: Yes (Other)
  Sender: FDA-Public Use
  Company Number: AU-ABBVIE-22K-008-4422920-00

PATIENT
  Age: 76 Year
  Sex: Female

DRUGS (3)
  1. VENETOCLAX [Suspect]
     Active Substance: VENETOCLAX
     Indication: Acute myeloid leukaemia
     Route: 048
  2. VENETOCLAX [Suspect]
     Active Substance: VENETOCLAX
     Dosage: DOSE REDUCED
     Route: 048
  3. AZACITIDINE [Suspect]
     Active Substance: AZACITIDINE
     Indication: Acute myeloid leukaemia
     Route: 065

REACTIONS (9)
  - Pancytopenia [Unknown]
  - Acute kidney injury [Unknown]
  - Hypervolaemia [Unknown]
  - Liver function test abnormal [Unknown]
  - Skin lesion [Unknown]
  - Pleural effusion [Unknown]
  - Pneumonia [Unknown]
  - Drug eruption [Unknown]
  - Constipation [Unknown]
